FAERS Safety Report 13550622 (Version 1)
Quarter: 2017Q2

REPORT INFORMATION
  Report Type: Spontaneous
  Country: US (occurrence: US)
  Receive Date: 20170516
  Receipt Date: 20170516
  Transmission Date: 20170830
  Serious: Yes (Other)
  Sender: FDA-Public Use
  Company Number: None

PATIENT
  Age: 36 Year
  Sex: Male
  Weight: 64.47 kg

DRUGS (5)
  1. BUPRENORPHINE-SUBOXONE FILMS [Suspect]
     Active Substance: BUPRENORPHINE HYDROCHLORIDE\NALOXONE HYDROCHLORIDE
     Indication: DRUG USE DISORDER
     Dosage: 2 FILMS DAILY ONCE/DAILY SUBLINGUAL
     Route: 060
     Dates: start: 20120716, end: 20131202
  2. ABILIFY [Concomitant]
     Active Substance: ARIPIPRAZOLE
  3. ASPIRIN. [Concomitant]
     Active Substance: ASPIRIN
  4. EPIPEN [Concomitant]
     Active Substance: EPINEPHRINE
  5. VYVANSE [Concomitant]
     Active Substance: LISDEXAMFETAMINE DIMESYLATE

REACTIONS (2)
  - Glossitis [None]
  - Stomatitis [None]

NARRATIVE: CASE EVENT DATE: 20131202
